FAERS Safety Report 5673569-7 (Version None)
Quarter: 2008Q1

REPORT INFORMATION
  Report Type: 
  Country: None (occurrence: None)
  Receive Date: 20080319
  Receipt Date: 20080318
  Transmission Date: 20080703
  Serious: Yes (Hospitalization)
  Sender: FDA-Public Use
  Company Number: US-BOEHRINGER INGELHEIM GMBH, GERMANY-2008-DE-01677GD

PATIENT
  Age: 13 Month
  Sex: Male

DRUGS (1)
  1. SERTRALINE [Suspect]
     Route: 048

REACTIONS (2)
  - ACCIDENTAL POISONING [None]
  - SEROTONIN SYNDROME [None]
